FAERS Safety Report 19830071 (Version 1)
Quarter: 2021Q3

REPORT INFORMATION
  Report Type: Spontaneous
  Country: US (occurrence: US)
  Receive Date: 20210914
  Receipt Date: 20210914
  Transmission Date: 20211014
  Serious: Yes (Hospitalization, Disabling, Other)
  Sender: FDA-Public Use
  Company Number: None

PATIENT
  Age: 56 Year
  Sex: Male
  Weight: 110.25 kg

DRUGS (6)
  1. PROPRANOLOL [Concomitant]
     Active Substance: PROPRANOLOL HYDROCHLORIDE
  2. ZYPREXA [Concomitant]
     Active Substance: OLANZAPINE
  3. PROBIOTIC [Concomitant]
     Active Substance: PROBIOTICS NOS
  4. TESTOSTERONE GEL 1% [Suspect]
     Active Substance: TESTOSTERONE
     Indication: HYPOGONADISM
     Dosage: ?          QUANTITY:1 PACKET;?
     Route: 061
  5. CENTRUM 50 MEN^S MULTIVITAMIN [Concomitant]
  6. SEROQUEL XR [Suspect]
     Active Substance: QUETIAPINE FUMARATE
     Indication: SCHIZOAFFECTIVE DISORDER
     Dosage: ?          QUANTITY:2 TABLET(S);?
     Route: 048

REACTIONS (1)
  - Hypogonadism [None]

NARRATIVE: CASE EVENT DATE: 20180517
